FAERS Safety Report 24452092 (Version 2)
Quarter: 2024Q4

REPORT INFORMATION
  Report Type: Spontaneous
  Country: PL (occurrence: FR)
  Receive Date: 20241017
  Receipt Date: 20241029
  Transmission Date: 20250115
  Serious: Yes (Other)
  Sender: SUNOVION
  Company Number: FR-Accord-451005

PATIENT

DRUGS (11)
  1. RELUGOLIX [Suspect]
     Active Substance: RELUGOLIX
     Indication: Neoplasm malignant
     Dosage: 120 MG, 3 TABLETS FOR THE FIRST DOSE, THEN 2 TABLETS
     Route: 065
     Dates: start: 20240826
  2. APALUTAMIDE [Concomitant]
     Active Substance: APALUTAMIDE
     Dosage: STRENGTH: 240 MG, ONE DAILY
     Route: 048
  3. APALUTAMIDE [Concomitant]
     Active Substance: APALUTAMIDE
     Dosage: STRENGTH: 240 MG, ONE DAILY
  4. TINZAPARIN SODIUM [Concomitant]
     Active Substance: TINZAPARIN SODIUM
     Dosage: STRENGTH: 16 000 UI, 1 DAILY
     Route: 065
  5. TINZAPARIN SODIUM [Concomitant]
     Active Substance: TINZAPARIN SODIUM
     Dosage: STRENGTH: 16 000 UI, 1 DAILY
  6. ELIQUIS [Concomitant]
     Active Substance: APIXABAN
     Dosage: UNK
     Route: 065
  7. MELATONIN [Concomitant]
     Active Substance: MELATONIN
     Dosage: STRENGTH: 1.9 MG
     Route: 065
  8. MELATONIN [Concomitant]
     Active Substance: MELATONIN
     Dosage: STRENGTH: 1.9 MG
  9. OMEGA 3 [Concomitant]
     Active Substance: CAPSAICIN
     Dosage: STRENGTH: 1242 MG, 735 MG, 427 MG
     Route: 065
  10. POLYETHYLENE GLYCOL 3350 [Concomitant]
     Active Substance: POLYETHYLENE GLYCOL 3350
     Dosage: DAILY
     Route: 065
  11. POLYETHYLENE GLYCOL 3350 [Concomitant]
     Active Substance: POLYETHYLENE GLYCOL 3350
     Dosage: DAILY

REACTIONS (2)
  - Hepatic cytolysis [Recovered/Resolved with Sequelae]
  - Transaminases increased [Recovered/Resolved with Sequelae]

NARRATIVE: CASE EVENT DATE: 20241002
